FAERS Safety Report 10238602 (Version 1)
Quarter: 2014Q2

REPORT INFORMATION
  Report Type: Spontaneous
  Country: GB (occurrence: GB)
  Receive Date: 20140616
  Receipt Date: 20140616
  Transmission Date: 20141212
  Serious: Yes (Other)
  Sender: FDA-Public Use
  Company Number: GB-MYLANLABS-2014S1013199

PATIENT
  Sex: Female

DRUGS (1)
  1. CIPROFLOXACIN [Suspect]
     Indication: URINARY TRACT INFECTION
     Dosage: SHORT COURSE
     Dates: start: 2006, end: 2006

REACTIONS (2)
  - Cystitis interstitial [Not Recovered/Not Resolved]
  - Pain [Not Recovered/Not Resolved]
